FAERS Safety Report 22215543 (Version 1)
Quarter: 2023Q2

REPORT INFORMATION
  Report Type: Spontaneous
  Country: US (occurrence: US)
  Receive Date: 20230416
  Receipt Date: 20230416
  Transmission Date: 20230722
  Serious: No
  Sender: FDA-Public Use
  Company Number: US-JNJFOC-20190738990

PATIENT
  Sex: Male
  Weight: 74.910 kg

DRUGS (1)
  1. IMODIUM MULTI-SYMPTOM RELIEF [Suspect]
     Active Substance: DIMETHICONE\LOPERAMIDE HYDROCHLORIDE
     Indication: Diarrhoea
     Dosage: 1 BEFORE MEAL 2 AFTER FIRST LOOSE STOOL ONCE
     Route: 048

REACTIONS (2)
  - Constipation [Unknown]
  - Inappropriate schedule of product administration [Unknown]
